FAERS Safety Report 8880336 (Version 1)
Quarter: 2012Q4

REPORT INFORMATION
  Report Type: Report from Study
  Country: US (occurrence: US)
  Receive Date: 20121031
  Receipt Date: 20121031
  Transmission Date: 20130627
  Serious: Yes (Hospitalization)
  Sender: FDA-Public Use
  Company Number: US-009507513-1210USA013924

PATIENT
  Age: 51 Year
  Sex: Male
  Weight: 111 kg

DRUGS (9)
  1. TEMOZOLOMIDE [Suspect]
     Indication: GLIOBLASTOMA
     Dosage: 160 mg, qd
     Route: 048
     Dates: start: 20120814, end: 20120828
  2. CARMUSTINE [Suspect]
     Indication: GLIOBLASTOMA
     Dosage: 8 wafers , qd
     Dates: start: 20120713
  3. DEXAMETHASONE [Concomitant]
     Dosage: 2 mg, bid
  4. LEVETIRACETAM [Concomitant]
     Dosage: 500 mg, bid
  5. LORAZEPAM [Concomitant]
     Dosage: 1 mg, 1 in 1 as required
  6. ONDANSETRON HYDROCHLORIDE [Concomitant]
     Dosage: 8 mg, prn
  7. PANTOPRAZOLE SODIUM [Concomitant]
  8. RAMIPRIL [Concomitant]
  9. SERTRALINE HYDROCHLORIDE [Concomitant]

REACTIONS (1)
  - Meningitis [Unknown]
